FAERS Safety Report 4981823-7 (Version None)
Quarter: 2006Q1

REPORT INFORMATION
  Report Type: 
  Country: None (occurrence: None)
  Receive Date: 20060329
  Receipt Date: 20060329
  Transmission Date: 20060701
  Serious: Yes (Hospitalization)
  Sender: FDA-Public Use
  Company Number: None

PATIENT
  Sex: Male
  Weight: 77.1115 kg

DRUGS (6)
  1. ENFUVIRTIDE (ENFUVIRTIDE) [Suspect]
     Indication: HIV INFECTION
     Dosage: 90 MG, 2 X DAY, SUBCU
     Route: 058
     Dates: start: 20060123
  2. NASONEX [Concomitant]
  3. ZURCAL [Concomitant]
  4. LEVITRA [Concomitant]
  5. RESTORIL [Concomitant]
  6. LAMISIL [Concomitant]

REACTIONS (9)
  - ABDOMINAL WALL MASS [None]
  - ARTERIAL INJURY [None]
  - INJECTION SITE HAEMATOMA [None]
  - INTERNATIONAL NORMALISED RATIO INCREASED [None]
  - MEDICAL DEVICE COMPLICATION [None]
  - PAIN [None]
  - PROTHROMBIN TIME PROLONGED [None]
  - SCROTAL DISORDER [None]
  - VENOUS INJURY [None]
